FAERS Safety Report 7713321-1 (Version None)
Quarter: 2011Q3

REPORT INFORMATION
  Report Type: 
  Country: None (occurrence: None)
  Receive Date: 20110826
  Receipt Date: 20110818
  Transmission Date: 20111222
  Serious: Yes (Other)
  Sender: FDA-Public Use
  Company Number: GB-JNJFOC-20110809555

PATIENT
  Age: 60 Year
  Sex: Male

DRUGS (3)
  1. METHOTREXATE [Concomitant]
     Dates: start: 20091124
  2. METHOTREXATE [Concomitant]
     Dates: start: 20030429
  3. INFLIXIMAB, RECOMBINANT [Suspect]
     Indication: PSORIATIC ARTHROPATHY
     Route: 042
     Dates: start: 20090702, end: 20090716

REACTIONS (1)
  - CARCINOMA IN SITU OF SKIN [None]
